FAERS Safety Report 6442912-3 (Version None)
Quarter: 2009Q4

REPORT INFORMATION
  Report Type: 
  Country: None (occurrence: None)
  Receive Date: 20091112
  Receipt Date: 20091105
  Transmission Date: 20100525
  Serious: Yes (Other)
  Sender: FDA-Public Use
  Company Number: A-US2009-29581

PATIENT
  Age: 67 Year
  Sex: Female

DRUGS (6)
  1. VENTAVIS [Suspect]
     Indication: PULMONARY ARTERIAL HYPERTENSION
     Dosage: 2.5 UG, 1 DOSE, RESPIRATORY
     Route: 055
     Dates: start: 20091022, end: 20091022
  2. TORSEMIDE [Concomitant]
  3. RAMIPRIL [Concomitant]
  4. LEVOTHYROXINE SODIUM [Concomitant]
  5. WARFARIN SODIUM [Concomitant]
  6. ESOMEPRAZOLE SODIUM (ESOMEPRAZOLE SODIUM) [Concomitant]

REACTIONS (2)
  - BRONCHOSPASM [None]
  - LARYNGOSPASM [None]
